FAERS Safety Report 7698788-X (Version None)
Quarter: 2011Q3

REPORT INFORMATION
  Report Type: 
  Country: None (occurrence: None)
  Receive Date: 20110819
  Receipt Date: 20110815
  Transmission Date: 20111222
  Serious: Yes (Other)
  Sender: FDA-Public Use
  Company Number: US-SANOFI-AVENTIS-2011SA052211

PATIENT
  Sex: Male

DRUGS (4)
  1. ATORVASTATIN [Concomitant]
  2. AVAPRO [Concomitant]
  3. ASPIRIN [Concomitant]
  4. PLAVIX [Suspect]
     Route: 048
     Dates: start: 19980101

REACTIONS (2)
  - HEPATIC CIRRHOSIS [None]
  - MEMORY IMPAIRMENT [None]
